FAERS Safety Report 4428824-5 (Version None)
Quarter: 2004Q3

REPORT INFORMATION
  Report Type: 
  Country: None (occurrence: None)
  Receive Date: 20040818
  Receipt Date: 20040716
  Transmission Date: 20050211
  Serious: Yes (Death, Hospitalization)
  Sender: FDA-Public Use
  Company Number: FR-GLAXOSMITHKLINE-B0339818A

PATIENT
  Sex: Male

DRUGS (1)
  1. ZEFFIX [Suspect]
     Indication: HEPATITIS B
     Route: 048
     Dates: start: 20040501

REACTIONS (8)
  - ABNORMAL SENSATION IN EYE [None]
  - ASTHENIA [None]
  - DEATH [None]
  - DIFFICULTY IN WALKING [None]
  - FATIGUE [None]
  - RENAL DISORDER [None]
  - SENSE OF OPPRESSION [None]
  - WEIGHT DECREASED [None]
